FAERS Safety Report 19893601 (Version 2)
Quarter: 2021Q4

REPORT INFORMATION
  Report Type: Report from Study
  Country: US (occurrence: US)
  Receive Date: 20210928
  Receipt Date: 20211006
  Transmission Date: 20220303
  Serious: No
  Sender: FDA-Public Use
  Company Number: US-BRISTOL-MYERS SQUIBB COMPANY-BMS-2021-092460

PATIENT
  Age: 94 Year
  Sex: Female

DRUGS (12)
  1. APIXABAN [Suspect]
     Active Substance: APIXABAN
     Indication: Pulmonary embolism
     Dosage: 2 TAB, BID
     Route: 048
     Dates: start: 2020, end: 20210909
  2. APIXABAN [Suspect]
     Active Substance: APIXABAN
     Dosage: 1 TAB, BID
     Route: 048
     Dates: start: 20210909, end: 202109
  3. APIXABAN [Suspect]
     Active Substance: APIXABAN
     Dosage: 2.5 MILLIGRAM, BID
     Route: 048
     Dates: start: 202109
  4. SYNTHROID [Concomitant]
     Active Substance: LEVOTHYROXINE SODIUM
     Indication: Product used for unknown indication
     Dosage: 5MG - ONCE A DAY, SIX DAYS A WEEK
     Route: 065
  5. LISINOPRIL [Concomitant]
     Active Substance: LISINOPRIL
     Indication: Product used for unknown indication
     Dosage: UNK, QD
     Route: 065
  6. L-LYSINE [LYSINE] [Concomitant]
     Indication: Product used for unknown indication
     Dosage: TWO A DAY
     Route: 065
  7. VITAMIN C [Concomitant]
     Active Substance: ASCORBIC ACID
     Indication: Product used for unknown indication
     Dosage: 1 DOSAGE FORM, QD
     Route: 065
  8. QUERCETIN [Concomitant]
     Active Substance: QUERCETIN
     Indication: Product used for unknown indication
     Dosage: 500 MILLIGRAM, QD
     Route: 065
  9. VITAMIN D3 [Concomitant]
     Active Substance: CHOLECALCIFEROL
     Indication: Product used for unknown indication
     Dosage: 50 MICROGRAM, QD
     Route: 065
  10. BORON [Concomitant]
     Active Substance: BORON
     Indication: Product used for unknown indication
     Dosage: 3 MILLIGRAM, QD
     Route: 065
  11. PHOSPHATIDYL SERINE [Concomitant]
     Active Substance: PHOSPHATIDYL SERINE
     Indication: Product used for unknown indication
     Dosage: 100 MILLIGRAM
     Route: 065
  12. MIRALAX [Concomitant]
     Active Substance: POLYETHYLENE GLYCOL 3350
     Indication: Product used for unknown indication
     Dosage: ? TEASPOON ? WITH GRAPE JUICE
     Route: 065

REACTIONS (6)
  - Erythema [Unknown]
  - Weight fluctuation [Unknown]
  - Decreased appetite [Unknown]
  - Product use issue [Unknown]
  - Product dispensing error [Unknown]
  - Contusion [Unknown]

NARRATIVE: CASE EVENT DATE: 20200101
